FAERS Safety Report 8047858-5 (Version None)
Quarter: 2012Q1

REPORT INFORMATION
  Report Type: 
  Country: None (occurrence: None)
  Receive Date: 20120116
  Receipt Date: 20120104
  Transmission Date: 20120608
  Serious: Yes (Death)
  Sender: FDA-Public Use
  Company Number: US-COVIDIEN/TYCO HEALTHCARE/MALLINCKRODT-T201200041

PATIENT
  Age: 57 Year
  Sex: Female

DRUGS (2)
  1. FENTANYL-100 [Suspect]
     Dosage: UNK
     Route: 062
  2. LAMOTRIGINE [Suspect]
     Dosage: UNK

REACTIONS (2)
  - DRUG ABUSE [None]
  - CARDIO-RESPIRATORY ARREST [None]
